FAERS Safety Report 23906270 (Version 1)
Quarter: 2024Q2

REPORT INFORMATION
  Report Type: Spontaneous
  Country: US (occurrence: US)
  Receive Date: 20240528
  Receipt Date: 20240528
  Transmission Date: 20240716
  Serious: No
  Sender: FDA-Public Use
  Company Number: US-STERISCIENCE B.V.-2023-ST-001735

PATIENT
  Age: 26 Year
  Sex: Female

DRUGS (10)
  1. AMPICILLIN [Suspect]
     Active Substance: AMPICILLIN
     Indication: Beta haemolytic streptococcal infection
     Dosage: UNK
     Route: 065
  2. TACROLIMUS [Suspect]
     Active Substance: TACROLIMUS
     Indication: Immunosuppressant drug therapy
     Dosage: 1 MILLIGRAM, BID
     Route: 065
  3. TACROLIMUS [Suspect]
     Active Substance: TACROLIMUS
     Dosage: 4 MILLIGRAM, BID, GRADUALLY INCREASED
     Route: 065
  4. URSODIOL [Suspect]
     Active Substance: URSODIOL
     Indication: Cholestasis of pregnancy
     Dosage: 300 MILLIGRAM, BID
     Route: 065
  5. URSODIOL [Suspect]
     Active Substance: URSODIOL
     Dosage: 300 MILLIGRAM, TID
     Route: 065
  6. URSODIOL [Suspect]
     Active Substance: URSODIOL
     Dosage: 600 MILLIGRAM, BID
     Route: 065
  7. VITAMIN K [Suspect]
     Active Substance: PHYTONADIONE
     Indication: Vitamin K deficiency
     Dosage: 10 MILLIGRAM; TWO DOSES
     Route: 042
  8. VITAMIN K [Suspect]
     Active Substance: PHYTONADIONE
     Dosage: 10 MILLIGRAM; TWO DOSES
     Route: 042
  9. BETAMETHASONE [Suspect]
     Active Substance: BETAMETHASONE\BETAMETHASONE DIPROPIONATE
     Indication: Maternal therapy to enhance foetal lung maturity
     Dosage: UNK
     Route: 065
  10. PITOCIN [Suspect]
     Active Substance: OXYTOCIN
     Indication: Labour induction
     Dosage: UNK
     Route: 065

REACTIONS (3)
  - Premature delivery [Unknown]
  - Maternal exposure during pregnancy [Unknown]
  - Normal newborn [Unknown]
